FAERS Safety Report 8341501-3 (Version None)
Quarter: 2012Q2

REPORT INFORMATION
  Report Type: 
  Country: None (occurrence: None)
  Receive Date: 20120507
  Receipt Date: 20120503
  Transmission Date: 20120825
  Serious: Yes (Hospitalization)
  Sender: FDA-Public Use
  Company Number: PHFR2012GB001880

PATIENT
  Sex: Male
  Weight: 124 kg

DRUGS (3)
  1. CLOZARIL [Suspect]
     Indication: SCHIZOPHRENIA
     Dosage: UNK
     Route: 048
     Dates: start: 20120113, end: 20120401
  2. VALPROATE SODIUM [Suspect]
     Dosage: UNK
  3. ATENOLOL [Suspect]
     Dosage: 50 MG, ONCE/SINGLE

REACTIONS (1)
  - DIFFERENTIAL WHITE BLOOD CELL COUNT ABNORMAL [None]
